FAERS Safety Report 7311746-X (Version None)
Quarter: 2011Q1

REPORT INFORMATION
  Report Type: 
  Country: None (occurrence: None)
  Receive Date: 20110215
  Receipt Date: 20110215
  Transmission Date: 20110831
  Serious: Yes (Other)
  Sender: FDA-Public Use
  Company Number: None

PATIENT
  Sex: Female
  Weight: 64.4108 kg

DRUGS (2)
  1. DOXIL [Suspect]
     Indication: OVARIAN CANCER
     Dates: start: 20101028
  2. DOXIL [Suspect]
     Indication: OVARIAN CANCER
     Dates: start: 20101201

REACTIONS (2)
  - CHILLS [None]
  - RASH MACULO-PAPULAR [None]
